FAERS Safety Report 4696986-0 (Version None)
Quarter: 2005Q2

REPORT INFORMATION
  Report Type: 
  Country: None (occurrence: None)
  Receive Date: 20050620
  Receipt Date: 20050309
  Transmission Date: 20051028
  Serious: No
  Sender: FDA-Public Use
  Company Number: US-YAMANOUCHI-YPA20050105

PATIENT
  Age: 72 Year
  Sex: Female
  Weight: 90.7194 kg

DRUGS (16)
  1. VESICARE [Suspect]
     Indication: INCONTINENCE
     Dosage: 5 MG DAILY PO
     Route: 048
     Dates: start: 20050308
  2. AVELOX [Suspect]
     Indication: PYURIA
     Dosage: 400 MG DAILY PO
     Route: 048
     Dates: start: 20050308
  3. AVELOX [Suspect]
     Indication: URINARY TRACT INFECTION
     Dosage: 400 MG DAILY PO
     Route: 048
     Dates: start: 20050308
  4. TOPROL-XL [Concomitant]
  5. CARTIA  /USA/ [Concomitant]
  6. LEVOXYL [Concomitant]
  7. ACIPHEX [Concomitant]
  8. EVISTA [Concomitant]
  9. ASPIRIN [Concomitant]
  10. LASIX [Concomitant]
  11. ACTONEL [Concomitant]
  12. GLUCOSAMINE/CHRONDROITIN [Concomitant]
  13. MULTIVITAMIN [Concomitant]
  14. CALCIUM GLUCONATE [Concomitant]
  15. VITAMIN E [Concomitant]
  16. OMEGA 3 [Concomitant]

REACTIONS (1)
  - ARTHRALGIA [None]
